FAERS Safety Report 15924056 (Version 1)
Quarter: 2019Q1

REPORT INFORMATION
  Report Type: Spontaneous
  Country: JP (occurrence: JP)
  Receive Date: 20190206
  Receipt Date: 20190206
  Transmission Date: 20190417
  Serious: Yes (Hospitalization, Other)
  Sender: FDA-Public Use
  Company Number: JP-GLAXOSMITHKLINE-JP2019JPN017967

PATIENT
  Age: 69 Year
  Sex: Male

DRUGS (2)
  1. FLUTIDE [Suspect]
     Active Substance: FLUTICASONE PROPIONATE
     Indication: ASTHMA
     Dosage: UNK
     Route: 055
  2. RELVAR ELLIPTA [Suspect]
     Active Substance: FLUTICASONE FUROATE\VILANTEROL TRIFENATATE
     Dosage: 100 ?G, UNK
     Route: 055

REACTIONS (7)
  - Pneumonia [Recovering/Resolving]
  - Foreign body in respiratory tract [Unknown]
  - Pruritus [Unknown]
  - Treatment noncompliance [Unknown]
  - Weight decreased [Unknown]
  - Dysphonia [Recovering/Resolving]
  - Physical deconditioning [Unknown]
